FAERS Safety Report 15132929 (Version 1)
Quarter: 2018Q3

REPORT INFORMATION
  Report Type: Spontaneous
  Country: JP (occurrence: JP)
  Receive Date: 20180712
  Receipt Date: 20180712
  Transmission Date: 20181010
  Serious: Yes (Other)
  Sender: FDA-Public Use
  Company Number: JP-LUPIN PHARMACEUTICALS INC.-2018-04894

PATIENT
  Age: 78 Year
  Sex: Female

DRUGS (1)
  1. DONEPEZIL. [Suspect]
     Active Substance: DONEPEZIL
     Indication: DEMENTIA
     Dosage: 5 MG, UNK
     Route: 065

REACTIONS (2)
  - Dysphagia [Recovering/Resolving]
  - Hypophagia [Recovering/Resolving]
